FAERS Safety Report 19319980 (Version 1)
Quarter: 2021Q2

REPORT INFORMATION
  Report Type: Spontaneous
  Country: GB (occurrence: GB)
  Receive Date: 20210528
  Receipt Date: 20210528
  Transmission Date: 20210717
  Serious: Yes (Other)
  Sender: FDA-Public Use
  Company Number: GB-AUROBINDO-AUR-APL-2021-021099

PATIENT
  Age: 66 Year
  Sex: Female
  Weight: 78.01 kg

DRUGS (1)
  1. AMLODIPINE [Suspect]
     Active Substance: AMLODIPINE BESYLATE
     Indication: ILL-DEFINED DISORDER
     Dosage: 10 MILLIGRAM(5MG AT FIRST NOW 10MG)
     Route: 048
     Dates: start: 20201201

REACTIONS (2)
  - Adverse drug reaction [Not Recovered/Not Resolved]
  - Fatigue [Not Recovered/Not Resolved]

NARRATIVE: CASE EVENT DATE: 20210101
